FAERS Safety Report 10334384 (Version 3)
Quarter: 2014Q3

REPORT INFORMATION
  Report Type: Spontaneous
  Country: US (occurrence: US)
  Receive Date: 20140723
  Receipt Date: 20140911
  Transmission Date: 20150326
  Serious: Yes (Other)
  Sender: FDA-Public Use
  Company Number: 2014SP004147

PATIENT
  Age: 64 Year
  Sex: Female
  Weight: 75.14 kg

DRUGS (31)
  1. FUROSEMIDE. [Concomitant]
     Active Substance: FUROSEMIDE
     Indication: POLYURIA
     Route: 042
     Dates: start: 20140710, end: 20140710
  2. MORPHINE [Concomitant]
     Active Substance: MORPHINE
     Indication: CHILLS
     Route: 042
     Dates: start: 20140702, end: 20140702
  3. PANTOPRAZOLE [Concomitant]
     Active Substance: PANTOPRAZOLE SODIUM
     Indication: GASTROINTESTINAL HAEMORRHAGE
     Route: 048
     Dates: start: 20140624, end: 20140712
  4. SEVELAMER [Concomitant]
     Active Substance: SEVELAMER
     Indication: PROPHYLAXIS
     Route: 048
     Dates: start: 20140624, end: 20140705
  5. VALTREX [Concomitant]
     Active Substance: VALACYCLOVIR HYDROCHLORIDE
     Indication: PROPHYLAXIS
     Route: 048
     Dates: start: 20140624
  6. LOPERAMIDE [Concomitant]
     Active Substance: LOPERAMIDE
     Indication: DIARRHOEA
     Route: 048
     Dates: start: 20140707, end: 20140712
  7. MEROPENEM. [Suspect]
     Active Substance: MEROPENEM
     Indication: PROPHYLAXIS
     Route: 042
     Dates: start: 20140712
  8. LORAZEPAM. [Concomitant]
     Active Substance: LORAZEPAM
     Indication: SEDATION
     Route: 042
     Dates: start: 20140714, end: 20140714
  9. ACETAMINOPHEN. [Concomitant]
     Active Substance: ACETAMINOPHEN
     Indication: PYREXIA
     Route: 048
     Dates: start: 20140702, end: 20140702
  10. CAPTOPRIL. [Concomitant]
     Active Substance: CAPTOPRIL
     Indication: HYPERTENSION
     Route: 048
     Dates: start: 20140627, end: 20140712
  11. ONDANSETRON [Concomitant]
     Active Substance: ONDANSETRON
     Indication: VOMITING
     Route: 042
     Dates: start: 20140627, end: 20140704
  12. PANTOPRAZOLE [Concomitant]
     Active Substance: PANTOPRAZOLE SODIUM
     Indication: PROPHYLAXIS
     Route: 042
     Dates: start: 20140712, end: 20140712
  13. DAUNORUBICIN [Suspect]
     Active Substance: DAUNORUBICIN
     Indication: ACUTE MYELOID LEUKAEMIA
     Route: 040
     Dates: start: 20140627, end: 20140629
  14. CHOLECALCIFEROL [Concomitant]
     Active Substance: CHOLECALCIFEROL
     Indication: VITAMIN D DEFICIENCY
     Route: 048
     Dates: start: 20140628
  15. DOCUSATE [Concomitant]
     Active Substance: DOCUSATE
     Indication: CONSTIPATION
     Route: 048
     Dates: start: 20140630, end: 20140703
  16. VANCOMYCIN [Concomitant]
     Active Substance: VANCOMYCIN
     Indication: PROPHYLAXIS
     Route: 042
     Dates: start: 20140702, end: 20140703
  17. MOXIFLOXACIN [Concomitant]
     Active Substance: MOXIFLOXACIN
     Indication: PROPHYLAXIS
     Route: 048
     Dates: start: 20140624, end: 20140702
  18. ONDANSETRON [Concomitant]
     Active Substance: ONDANSETRON
     Indication: NAUSEA
     Route: 042
     Dates: start: 20140627, end: 20140704
  19. POTASSIUM CHLORIDE. [Concomitant]
     Active Substance: POTASSIUM CHLORIDE
     Indication: BLOOD POTASSIUM DECREASED
     Route: 042
     Dates: start: 20140705, end: 20140709
  20. SENNA /00571902/ [Concomitant]
     Indication: CONSTIPATION
     Route: 048
     Dates: start: 20140630, end: 20140704
  21. MICAFUNGIN [Concomitant]
     Active Substance: MICAFUNGIN
     Indication: PROPHYLAXIS
     Route: 042
     Dates: start: 20140701
  22. PANTOPRAZOLE [Concomitant]
     Active Substance: PANTOPRAZOLE SODIUM
     Indication: PROPHYLAXIS
     Route: 048
     Dates: start: 20140624, end: 20140712
  23. PIPERACILLIN [Concomitant]
     Active Substance: PIPERACILLIN
     Indication: PROPHYLAXIS
     Route: 042
     Dates: start: 20140702
  24. MIRALAX [Concomitant]
     Active Substance: POLYETHYLENE GLYCOL 3350
     Indication: CONSTIPATION
     Route: 048
     Dates: start: 20140628, end: 20140702
  25. CYTARABINE. [Suspect]
     Active Substance: CYTARABINE
     Indication: ACUTE MYELOID LEUKAEMIA
     Route: 042
     Dates: start: 20140627, end: 20140704
  26. ALLOPURINOL. [Concomitant]
     Active Substance: ALLOPURINOL
     Indication: PROPHYLAXIS
     Route: 048
     Dates: start: 20140628, end: 20140704
  27. LACTULOSE. [Concomitant]
     Active Substance: LACTULOSE
     Indication: CONSTIPATION
     Route: 048
     Dates: start: 20140702, end: 20140702
  28. OXYCODONE [Concomitant]
     Active Substance: OXYCODONE
     Indication: BACK PAIN
     Route: 048
     Dates: start: 20140723
  29. PANTOPRAZOLE [Concomitant]
     Active Substance: PANTOPRAZOLE SODIUM
     Indication: GASTROINTESTINAL HAEMORRHAGE
     Route: 042
     Dates: start: 20140712, end: 20140712
  30. PANTOPRAZOLE [Concomitant]
     Active Substance: PANTOPRAZOLE SODIUM
     Indication: PROPHYLAXIS
     Route: 042
     Dates: start: 20140712, end: 20140715
  31. PANTOPRAZOLE [Concomitant]
     Active Substance: PANTOPRAZOLE SODIUM
     Indication: GASTROINTESTINAL HAEMORRHAGE
     Route: 042
     Dates: start: 20140712, end: 20140715

REACTIONS (16)
  - Dyskinesia [Recovered/Resolved]
  - Atrioventricular block [Unknown]
  - Electrocardiogram QRS complex prolonged [Unknown]
  - Myocardial infarction [Unknown]
  - Platelet count decreased [Unknown]
  - Loss of consciousness [Unknown]
  - Pancreatitis [Unknown]
  - Hyperhidrosis [Recovered/Resolved]
  - Unresponsive to stimuli [Unknown]
  - Upper gastrointestinal haemorrhage [Recovered/Resolved]
  - Anaemia [Unknown]
  - Palpitations [Recovered/Resolved]
  - Melaena [Unknown]
  - Abdominal pain upper [Recovered/Resolved]
  - Pancytopenia [Unknown]
  - Presyncope [Recovered/Resolved]

NARRATIVE: CASE EVENT DATE: 20140712
